FAERS Safety Report 16121679 (Version 1)
Quarter: 2019Q1

REPORT INFORMATION
  Report Type: Spontaneous
  Country: GB (occurrence: GB)
  Receive Date: 20190327
  Receipt Date: 20190327
  Transmission Date: 20190418
  Serious: Yes (Other)
  Sender: FDA-Public Use
  Company Number: GB-ACCORD-113710

PATIENT
  Age: 81 Year
  Sex: Male

DRUGS (1)
  1. ZOLEDRONIC ACID [Suspect]
     Active Substance: ZOLEDRONIC ACID
     Indication: PROSTATE CANCER
     Route: 042

REACTIONS (4)
  - Renal impairment [Unknown]
  - Fistula discharge [Recovered/Resolved]
  - Osteonecrosis of jaw [Recovered/Resolved]
  - Blood creatinine abnormal [Unknown]
